FAERS Safety Report 21963167 (Version 1)
Quarter: 2023Q1

REPORT INFORMATION
  Report Type: Spontaneous
  Country: US (occurrence: None)
  Receive Date: 20230205
  Receipt Date: 20230205
  Transmission Date: 20230417
  Serious: Yes (Other)
  Sender: FDA-Public Use
  Company Number: None

PATIENT
  Age: 62 Year
  Sex: Female
  Weight: 86.85 kg

DRUGS (1)
  1. PROGESTERONE [Suspect]
     Active Substance: PROGESTERONE

REACTIONS (18)
  - Dizziness [None]
  - Dysstasia [None]
  - Gait disturbance [None]
  - Nausea [None]
  - Vomiting [None]
  - Diarrhoea [None]
  - Constipation [None]
  - Confusional state [None]
  - Dysuria [None]
  - Presyncope [None]
  - Hyperhidrosis [None]
  - Diverticulum [None]
  - Dyspareunia [None]
  - Faeces discoloured [None]
  - Muscular weakness [None]
  - Therapy cessation [None]
  - Libido decreased [None]
  - Toxicity to various agents [None]

NARRATIVE: CASE EVENT DATE: 20220601
